FAERS Safety Report 24372774 (Version 1)
Quarter: 2024Q3

REPORT INFORMATION
  Report Type: Spontaneous
  Country: US (occurrence: None)
  Receive Date: 20240927
  Receipt Date: 20240927
  Transmission Date: 20241017
  Serious: Yes (unspecified)
  Sender: Public
  Company Number: None

PATIENT
  Age: 53 Year
  Sex: Male

DRUGS (1)
  1. SOFOSBUVIR AND VELPATASVIR [Suspect]
     Active Substance: SOFOSBUVIR\VELPATASVIR
     Indication: Chronic hepatitis C
     Dosage: FREQUENCY : DAILY;?

REACTIONS (11)
  - Treatment failure [None]
  - Fatigue [None]
  - Diarrhoea [None]
  - Abdominal discomfort [None]
  - Bedridden [None]
  - Dyspepsia [None]
  - Condition aggravated [None]
  - Dysstasia [None]
  - Gait inability [None]
  - Balance disorder [None]
  - Memory impairment [None]
